FAERS Safety Report 4530148-2 (Version None)
Quarter: 2004Q4

REPORT INFORMATION
  Report Type: 
  Country: None (occurrence: None)
  Receive Date: 20041215
  Receipt Date: 20041203
  Transmission Date: 20050328
  Serious: Yes (Hospitalization)
  Sender: FDA-Public Use
  Company Number: 2004IM000981

PATIENT
  Age: 51 Year
  Sex: Male

DRUGS (3)
  1. ACTIMMUNE [Suspect]
     Indication: HEPATITIS C
     Dosage: 50 UG; TIW
     Dates: start: 20041014, end: 20041112
  2. INFERGEN [Suspect]
     Indication: HEPATITIS C
     Dosage: 17 UG; QD
     Dates: start: 20041014, end: 20041112
  3. REBETOL [Suspect]
     Indication: HEPATITIS C
     Dosage: 1000 MG; QD
     Dates: start: 20041014, end: 20041112

REACTIONS (5)
  - ARTHRALGIA [None]
  - INFECTION [None]
  - LYMPHOMA [None]
  - MYOSITIS [None]
  - PYREXIA [None]
